FAERS Safety Report 7128144 (Version 4)
Quarter: 2014Q3

REPORT INFORMATION
  Report Type: Spontaneous
  Country: US (occurrence: US)
  Receive Date: 20090924
  Receipt Date: 20140703
  Transmission Date: 20150326
  Serious: Yes (Hospitalization, Other)
  Sender: FDA-Public Use
  Company Number: US-ASTRAZENECA-2009UW06609

PATIENT
  Age: 45 Year
  Sex: Female
  Weight: 50.8 kg

DRUGS (9)
  1. SEROQUEL [Suspect]
     Active Substance: QUETIAPINE FUMARATE
     Dosage: 25-400 MG
     Route: 048
     Dates: start: 200809
  2. PROPRANOLOL [Concomitant]
     Active Substance: PROPRANOLOL\PROPRANOLOL HYDROCHLORIDE
     Indication: MIGRAINE PROPHYLAXIS
  3. SEROQUEL [Suspect]
     Active Substance: QUETIAPINE FUMARATE
     Route: 048
  4. LITHIUM [Concomitant]
     Active Substance: LITHIUM CARBONATE
     Indication: BIPOLAR DISORDER
  5. RITALIN [Concomitant]
     Active Substance: METHYLPHENIDATE HYDROCHLORIDE
     Dates: end: 20090303
  6. SEROQUEL [Suspect]
     Active Substance: QUETIAPINE FUMARATE
     Route: 048
  7. ZOMIG [Suspect]
     Active Substance: ZOLMITRIPTAN
     Indication: MIGRAINE
     Dosage: 1 TABLET AT ONSET OF HEADACHE. MAX 2 PER 24 HOURS
     Route: 048
     Dates: start: 200912
  8. CITALOPRAM [Concomitant]
     Active Substance: CITALOPRAM HYDROBROMIDE
  9. VITAMINS [Concomitant]
     Active Substance: VITAMINS
     Indication: VITAMIN SUPPLEMENTATION

REACTIONS (6)
  - Feeling abnormal [Unknown]
  - Chronic obstructive pulmonary disease [Unknown]
  - Headache [Unknown]
  - Drug effect decreased [Unknown]
  - Somnolence [Unknown]
  - Intentional product misuse [Unknown]
